FAERS Safety Report 5013462-6 (Version None)
Quarter: 2006Q2

REPORT INFORMATION
  Report Type: 
  Country: None (occurrence: None)
  Receive Date: 20060525
  Receipt Date: 20060512
  Transmission Date: 20061013
  Serious: Yes (Other)
  Sender: FDA-Public Use
  Company Number: 2006065021

PATIENT
  Age: 43 Year
  Sex: Female

DRUGS (1)
  1. BEXTRA [Suspect]
     Indication: INTERVERTEBRAL DISC PROTRUSION
     Dosage: (20 MG)
     Dates: start: 20030225

REACTIONS (1)
  - STEVENS-JOHNSON SYNDROME [None]
